FAERS Safety Report 6010271-6 (Version None)
Quarter: 2008Q4

REPORT INFORMATION
  Report Type: 
  Country: None (occurrence: None)
  Receive Date: 20081218
  Receipt Date: 20080319
  Transmission Date: 20090506
  Serious: No
  Sender: FDA-Public Use
  Company Number: A0717675A

PATIENT
  Sex: Male

DRUGS (1)
  1. FLONASE [Suspect]
     Indication: DRUG USE FOR UNKNOWN INDICATION
     Route: 045
     Dates: start: 20071126, end: 20080301

REACTIONS (3)
  - GLOSSODYNIA [None]
  - OROPHARYNGEAL PAIN [None]
  - SWOLLEN TONGUE [None]
